FAERS Safety Report 7712845-0 (Version None)
Quarter: 2011Q3

REPORT INFORMATION
  Report Type: 
  Country: None (occurrence: None)
  Receive Date: 20110826
  Receipt Date: 20110816
  Transmission Date: 20111222
  Serious: Yes (Other)
  Sender: FDA-Public Use
  Company Number: PHHY2011AU45748

PATIENT
  Sex: Male

DRUGS (1)
  1. SANDOSTATIN LAR [Suspect]
     Dosage: 10 MG, UNK
     Route: 030

REACTIONS (3)
  - SYRINGE ISSUE [None]
  - INJECTION SITE EXTRAVASATION [None]
  - UNDERDOSE [None]
